APPROVED DRUG PRODUCT: VALPROIC ACID
Active Ingredient: VALPROIC ACID
Strength: 250MG
Dosage Form/Route: CAPSULE;ORAL
Application: A073229 | Product #001 | TE Code: AB
Applicant: CATALENT PHARMA SOLUTIONS LLC
Approved: Oct 29, 1991 | RLD: No | RS: No | Type: RX